FAERS Safety Report 19864692 (Version 2)
Quarter: 2021Q4

REPORT INFORMATION
  Report Type: Spontaneous
  Country: US (occurrence: US)
  Receive Date: 20210922
  Receipt Date: 20211116
  Transmission Date: 20220303
  Serious: Yes (Death, Life-Threatening, Hospitalization, Other)
  Sender: FDA-Public Use
  Company Number: US-MLMSERVICE-20210902-3079768-1

PATIENT

DRUGS (3)
  1. CYCLOPHOSPHAMIDE [Suspect]
     Active Substance: CYCLOPHOSPHAMIDE
     Indication: Acquired haemophilia
     Dosage: UNK
     Route: 065
  2. PREDNISONE [Suspect]
     Active Substance: PREDNISONE
     Indication: Acquired haemophilia
     Dosage: UNK
     Route: 065
  3. ENTECAVIR [Concomitant]
     Active Substance: ENTECAVIR
     Indication: Chronic hepatitis B
     Dosage: UNK
     Route: 065

REACTIONS (13)
  - Ventricular fibrillation [Fatal]
  - Acute respiratory distress syndrome [Fatal]
  - Torsade de pointes [Fatal]
  - Citrobacter infection [Fatal]
  - Streptococcal infection [Fatal]
  - Granulicatella infection [Fatal]
  - Bacteraemia [Fatal]
  - Strongyloidiasis [Fatal]
  - Enterococcal infection [Fatal]
  - Morganella infection [Fatal]
  - Sepsis [Fatal]
  - Respiratory failure [Fatal]
  - Pneumonia [Fatal]
